FAERS Safety Report 4340232-4 (Version None)
Quarter: 2004Q1

REPORT INFORMATION
  Report Type: 
  Country: None (occurrence: None)
  Receive Date: 20040329
  Receipt Date: 20040106
  Transmission Date: 20041129
  Serious: No
  Sender: FDA-Public Use
  Company Number: 03P-163-0245916-00

PATIENT
  Age: 72 Year
  Sex: Female
  Weight: 83.9154 kg

DRUGS (18)
  1. HUMIRA [Suspect]
     Indication: RHEUMATOID ARTHRITIS
     Dosage: 40 MG, 1 IN 2 WK, SUBCUTANEOUS
     Route: 058
     Dates: start: 20031022, end: 20031203
  2. ALBUTEROL SULFATE [Concomitant]
  3. IPRATROPIUM BROMIDE [Concomitant]
  4. PROPRANOLOL HYDROCHLORIDE [Concomitant]
  5. AMITRIPTYLINE HYDROCHLORIDE [Concomitant]
  6. MACROGOL [Concomitant]
  7. OXYCOCET [Concomitant]
  8. RISEDRONATE SODIUM [Concomitant]
  9. ESOMEPRAZOLE [Concomitant]
  10. DICYCLOMINE HCL [Concomitant]
  11. FEXOFENADINE HYDROCHLORIDE [Concomitant]
  12. FOLIC ACID [Concomitant]
  13. MULTI-VITAMINS [Concomitant]
  14. MAGNESIUM [Concomitant]
  15. BORAGE OIL [Concomitant]
  16. TOCOPHEROL CONCENTRATE CAP [Concomitant]
  17. GRAPE SEED PLUS [Concomitant]
  18. CALCIUM [Concomitant]

REACTIONS (4)
  - DYSPNOEA EXACERBATED [None]
  - PAINFUL RESPIRATION [None]
  - PULMONARY OEDEMA [None]
  - PYREXIA [None]
